FAERS Safety Report 12250389 (Version 2)
Quarter: 2018Q4

REPORT INFORMATION
  Report Type: Spontaneous
  Country: DE (occurrence: DE)
  Receive Date: 20160408
  Receipt Date: 20181001
  Transmission Date: 20190204
  Serious: Yes (Hospitalization)
  Sender: FDA-Public Use
  Company Number: PHHY2016DE038613

PATIENT
  Age: 80 Year
  Sex: Female

DRUGS (1)
  1. HYDROCHLOROTHIAZIDE. [Suspect]
     Active Substance: HYDROCHLOROTHIAZIDE
     Indication: HYPERTENSION
     Dosage: 25 MG (1-0-1/2)
     Route: 065

REACTIONS (7)
  - Vomiting [Unknown]
  - General physical health deterioration [Unknown]
  - Depressed level of consciousness [Unknown]
  - Nausea [Unknown]
  - Hyponatraemia [Recovered/Resolved]
  - Amnesia [Unknown]
  - Urinary tract disorder [Recovered/Resolved]
